FAERS Safety Report 9540188 (Version 1)
Quarter: 2013Q2

REPORT INFORMATION
  Report Type: Spontaneous
  Country: US (occurrence: None)
  Receive Date: 20130524
  Receipt Date: 20130524
  Transmission Date: 20140414
  Serious: Yes (Other)
  Sender: FDA-Public Use
  Company Number: PHEH2013US004572

PATIENT
  Sex: Female
  Weight: 83 kg

DRUGS (11)
  1. GILENYA [Suspect]
     Indication: MULTIPLE SCLEROSIS
     Dosage: 0.5 MG, UNK , ORAL
     Route: 048
  2. NAPRELAN (NAPROXEN SODIUM) TABLET [Concomitant]
  3. ZYRTEC ALLERGY (CITRIZINE HYDROCHLORIDE) [Concomitant]
  4. VITAMIN B COMPLEX (VITAMIN B COMPLEX) [Concomitant]
  5. VITAMIN B COMPLEX (VITAMIN B COMPLEX) [Concomitant]
  6. FISH OIL (FISH OIL) [Concomitant]
  7. VIT-C (ASCORBIC ACID) CAPSULE [Concomitant]
  8. MULTIVIT (VITAMIN D (CALCIUM CARBONATE, COLECALCIFEROL) TABLET [Concomitant]
  9. CALCIUM + VITAMIN D (CALCIUM CARBONATE, COLECALCIFEROL) TABLET [Concomitant]
  10. SKELAXIN (METAXALONE) TABLET [Concomitant]
  11. XANAX (ALPRAZOLAM) TABLET [Concomitant]

REACTIONS (2)
  - Weight increased [None]
  - Cough [None]
